FAERS Safety Report 6998307-7 (Version None)
Quarter: 2010Q3

REPORT INFORMATION
  Report Type: 
  Country: None (occurrence: None)
  Receive Date: 20100920
  Receipt Date: 20091016
  Transmission Date: 20110219
  Serious: No
  Sender: FDA-Public Use
  Company Number: US-ASTRAZENECA-2009SE20785

PATIENT
  Age: 64 Year
  Sex: Female
  Weight: 54.4 kg

DRUGS (3)
  1. SEROQUEL [Suspect]
     Route: 048
  2. LORAZEPAM [Concomitant]
  3. MULTIPLE VITAMINS [Concomitant]

REACTIONS (4)
  - CRYING [None]
  - DECREASED ACTIVITY [None]
  - DRUG DOSE OMISSION [None]
  - MENTAL IMPAIRMENT [None]
